FAERS Safety Report 18884226 (Version 2)
Quarter: 2021Q2

REPORT INFORMATION
  Report Type: Spontaneous
  Country: DE (occurrence: DE)
  Receive Date: 20210212
  Receipt Date: 20210514
  Transmission Date: 20210717
  Serious: Yes (Death, Hospitalization, Other)
  Sender: FDA-Public Use
  Company Number: DE-GLAXOSMITHKLINE-DECH2021GSK004644

PATIENT
  Sex: Female

DRUGS (7)
  1. VOLTAREN SCHMERZGEL FORTE [Suspect]
     Active Substance: DICLOFENAC DIETHYLAMINE
     Indication: BACK PAIN
     Dosage: UNK
  2. VOLTAREN [Suspect]
     Active Substance: DICLOFENAC SODIUM
     Indication: BACK PAIN
     Dosage: UNK
  3. VOLTAREN WAERMEPFLASTER (OKAMOTO BUTTERFLY PATCH) [Suspect]
     Active Substance: DEVICE
     Indication: BACK PAIN
     Dosage: UNK
  4. VOLTAREN DOLO LIQUID 12.5MG [Suspect]
     Active Substance: DICLOFENAC POTASSIUM
     Indication: BACK PAIN
     Dosage: UNK
  5. VOLTAREN WAERMEPFLASTER (HOSHO RECTANGULAR PATCH) [Suspect]
     Active Substance: DEVICE
     Indication: BACK PAIN
     Dosage: UNK
  6. BORTEZOMIB. [Suspect]
     Active Substance: BORTEZOMIB
     Indication: CHEMOTHERAPY
  7. VOLTAREN [Suspect]
     Active Substance: DICLOFENAC SODIUM
     Indication: BACK PAIN

REACTIONS (30)
  - Bed rest [Fatal]
  - Weight decreased [Fatal]
  - Cardiovascular disorder [Unknown]
  - Blood pressure abnormal [Unknown]
  - Social problem [Unknown]
  - Haemoglobin decreased [Unknown]
  - Red blood cell count decreased [Unknown]
  - Red cell distribution width increased [Unknown]
  - Suspected COVID-19 [Fatal]
  - Plasmacytoma [Unknown]
  - Haematocrit decreased [Unknown]
  - Acute kidney injury [Fatal]
  - Thoracic vertebral fracture [Unknown]
  - Impaired healing [Unknown]
  - White blood cell count increased [Unknown]
  - Neutrophil count increased [Unknown]
  - Asthenia [Fatal]
  - Peripheral swelling [Unknown]
  - Drug abuse [Unknown]
  - Febrile infection [Unknown]
  - Tachycardia [Unknown]
  - Lymphocyte count decreased [Unknown]
  - Blood test abnormal [Unknown]
  - Intentional product misuse [Unknown]
  - Blood creatinine increased [Unknown]
  - Red blood cell sedimentation rate increased [Unknown]
  - Necrosis [Unknown]
  - Pulse abnormal [Unknown]
  - Chronic obstructive pulmonary disease [Unknown]
  - Blood calcium increased [Unknown]
